FAERS Safety Report 8023100-6 (Version None)
Quarter: 2012Q1

REPORT INFORMATION
  Report Type: 
  Country: None (occurrence: None)
  Receive Date: 20120104
  Receipt Date: 20111227
  Transmission Date: 20120608
  Serious: Yes (Hospitalization, Other)
  Sender: FDA-Public Use
  Company Number: US-ABBOTT-11P-163-0883756-00

PATIENT
  Age: 47 Year
  Sex: Male
  Weight: 54.026 kg

DRUGS (4)
  1. DEPAKOTE ER [Suspect]
     Indication: BIPOLAR DISORDER
     Dosage: AT BEDTIME
     Route: 048
     Dates: start: 20110822, end: 20111114
  2. CLONIDINE [Concomitant]
     Indication: HYPERTENSION
     Dates: start: 20101201
  3. UNKNOWN STUDY MEDICATION [Suspect]
     Indication: BIPOLAR I DISORDER
     Dosage: 80 MG AT BEDTIME
     Route: 048
     Dates: start: 20110830, end: 20111107
  4. DEPAKOTE ER [Suspect]
     Route: 048
     Dates: start: 20110822, end: 20111114

REACTIONS (8)
  - DIARRHOEA [None]
  - DIVERTICULITIS [None]
  - NAUSEA [None]
  - HYPERTENSION [None]
  - ATRIAL FIBRILLATION [None]
  - ABDOMINAL PAIN UPPER [None]
  - VOMITING [None]
  - CHOLELITHIASIS [None]
